FAERS Safety Report 6787436-9 (Version None)
Quarter: 2010Q2

REPORT INFORMATION
  Report Type: 
  Country: None (occurrence: None)
  Receive Date: 20100623
  Receipt Date: 20070326
  Transmission Date: 20101027
  Serious: Yes (Death)
  Sender: FDA-Public Use
  Company Number: US-PFIZER INC-2007024009

PATIENT
  Age: 35 Year
  Sex: Female
  Weight: 106.1 kg

DRUGS (4)
  1. DEPO-PROVERA SUSPENSION/INJ [Suspect]
     Indication: CONTRACEPTION
     Dosage: 1ST INJECTION
     Route: 030
     Dates: start: 19990101, end: 19990101
  2. DEPO-PROVERA SUSPENSION/INJ [Suspect]
     Dosage: LAST INJECTION
     Route: 030
     Dates: start: 20040101, end: 20040101
  3. ADIPEX [Concomitant]
     Indication: OBESITY
  4. FIORINAL [Concomitant]
     Indication: ANALGESIC THERAPY

REACTIONS (2)
  - INAPPROPRIATE SCHEDULE OF DRUG ADMINISTRATION [None]
  - PULMONARY EMBOLISM [None]
